FAERS Safety Report 24724427 (Version 1)
Quarter: 2024Q4

REPORT INFORMATION
  Report Type: Report from Study
  Country: US (occurrence: US)
  Receive Date: 20241212
  Receipt Date: 20241212
  Transmission Date: 20250114
  Serious: Yes (Other)
  Sender: ABBVIE
  Company Number: US-ABBVIE-6040324

PATIENT

DRUGS (1)
  1. HUMIRA [Suspect]
     Active Substance: ADALIMUMAB
     Indication: Product used for unknown indication
     Route: 058

REACTIONS (8)
  - Behcet^s syndrome [Unknown]
  - Diabetes mellitus [Unknown]
  - Coccidioidomycosis [Unknown]
  - Paraesthesia [Unknown]
  - Joint swelling [Unknown]
  - Skin discolouration [Unknown]
  - Raynaud^s phenomenon [Unknown]
  - Immune system disorder [Unknown]
